FAERS Safety Report 25947409 (Version 2)
Quarter: 2025Q4

REPORT INFORMATION
  Report Type: Spontaneous
  Country: AR (occurrence: AR)
  Receive Date: 20251022
  Receipt Date: 20251028
  Transmission Date: 20260117
  Serious: Yes (Death, Hospitalization)
  Sender: SANDOZ
  Company Number: AR-002147023-NVSC2025AR161807

PATIENT
  Sex: Female

DRUGS (2)
  1. FULVESTRANT [Suspect]
     Active Substance: FULVESTRANT
     Indication: Breast cancer metastatic
     Dosage: UNK
     Route: 065
  2. KISQALI [Suspect]
     Active Substance: RIBOCICLIB SUCCINATE
     Indication: Breast cancer metastatic
     Dosage: UNK
     Route: 065
     Dates: start: 20250818

REACTIONS (2)
  - Pneumonia [Fatal]
  - Cardiac arrest [Fatal]

NARRATIVE: CASE EVENT DATE: 20250827
